FAERS Safety Report 5898429-8 (Version None)
Quarter: 2008Q3

REPORT INFORMATION
  Report Type: 
  Country: None (occurrence: None)
  Receive Date: 20080925
  Receipt Date: 20071101
  Transmission Date: 20090109
  Serious: No
  Sender: FDA-Public Use
  Company Number: A0691010A

PATIENT
  Age: 52 Year
  Sex: Male

DRUGS (5)
  1. WELLBUTRIN XL [Suspect]
     Dosage: 75MG PER DAY
     Route: 048
     Dates: start: 20060101, end: 20060101
  2. LEXAPRO [Concomitant]
  3. ZYRTEC [Concomitant]
  4. DIURETIC [Concomitant]
  5. SYNTHROID [Concomitant]

REACTIONS (4)
  - DRUG ADMINISTRATION ERROR [None]
  - HEARING IMPAIRED [None]
  - HYPERACUSIS [None]
  - RASH [None]
